FAERS Safety Report 5723836-3 (Version None)
Quarter: 2008Q2

REPORT INFORMATION
  Report Type: 
  Country: None (occurrence: None)
  Receive Date: 20080429
  Receipt Date: 20080429
  Transmission Date: 20081010
  Serious: Yes (Other)
  Sender: FDA-Public Use
  Company Number: None

PATIENT
  Sex: Female
  Weight: 92.9874 kg

DRUGS (2)
  1. LOVENOX [Suspect]
     Indication: ANTICOAGULANT THERAPY
     Dosage: 100 MG TWICE A DAY SQ
     Route: 058
     Dates: start: 20080425, end: 20080428
  2. LOVENOX [Suspect]
     Indication: CORONARY ARTERY DISEASE
     Dosage: 100 MG TWICE A DAY SQ
     Route: 058
     Dates: start: 20080425, end: 20080428

REACTIONS (2)
  - ASTHENIA [None]
  - NAUSEA [None]
